FAERS Safety Report 14156276 (Version 3)
Quarter: 2017Q4

REPORT INFORMATION
  Report Type: Report from Study
  Country: None (occurrence: CH)
  Receive Date: 20171103
  Receipt Date: 20171110
  Transmission Date: 20180321
  Serious: Yes (Death, Hospitalization)
  Sender: FDA-Public Use
  Company Number: CH-ABBVIE-17K-151-2151368-00

PATIENT
  Sex: Female
  Weight: 37 kg

DRUGS (6)
  1. MADOPAR LIQ [Concomitant]
     Dosage: VARIABLE
     Route: 048
     Dates: end: 20171027
  2. VANCOMYCIN [Concomitant]
     Active Substance: VANCOMYCIN
     Indication: CLOSTRIDIAL INFECTION
     Dosage: 4X125MG
     Route: 048
     Dates: start: 20171017, end: 20171025
  3. DUODOPA [Suspect]
     Active Substance: CARBIDOPA\LEVODOPA
     Indication: PARKINSON^S DISEASE
     Dosage: MD: 3ML?CD DAY: 4.6ML/H?CD NIGHT: 3ML/H?ED: 1ML
     Route: 050
     Dates: start: 20171026
  4. METRONIDAZOL [Concomitant]
     Active Substance: METRONIDAZOLE
     Indication: LUNG INFECTION
     Dosage: 3X250MG
     Route: 042
     Dates: start: 20171025, end: 20171031
  5. CEFTRIAXON [Concomitant]
     Active Substance: CEFTRIAXONE
     Indication: URINARY TRACT INFECTION
     Route: 042
     Dates: start: 20171007, end: 20171013
  6. MADOPAR LIQ [Concomitant]
     Indication: PRODUCT USED FOR UNKNOWN INDICATION
     Route: 048
     Dates: start: 20171027

REACTIONS (6)
  - Clostridial infection [Fatal]
  - Device occlusion [Unknown]
  - Cachexia [Fatal]
  - Device breakage [Unknown]
  - Multiple organ dysfunction syndrome [Fatal]
  - Pneumonia [Fatal]

NARRATIVE: CASE EVENT DATE: 2017
